FAERS Safety Report 15581431 (Version 1)
Quarter: 2018Q4

REPORT INFORMATION
  Report Type: Spontaneous
  Country: US (occurrence: US)
  Receive Date: 20181102
  Receipt Date: 20181102
  Transmission Date: 20190205
  Serious: No
  Sender: FDA-Public Use
  Company Number: US-RADIUS HEALTH INC.-2018US002120

PATIENT
  Age: 26 Year
  Sex: Female

DRUGS (2)
  1. TYMLOS [Suspect]
     Active Substance: ABALOPARATIDE
     Indication: OSTEOPOROSIS
  2. TYMLOS [Suspect]
     Active Substance: ABALOPARATIDE
     Indication: OSTEOPOROSIS POSTMENOPAUSAL
     Dosage: 80 MCG, DAILY
     Route: 058
     Dates: start: 201808

REACTIONS (7)
  - Malaise [Unknown]
  - Off label use [Recovered/Resolved]
  - Erythema [Unknown]
  - Headache [Unknown]
  - Injection site pain [Unknown]
  - Insomnia [Unknown]
  - Retching [Unknown]

NARRATIVE: CASE EVENT DATE: 201808
